FAERS Safety Report 9509992 (Version 1)
Quarter: 2013Q3

REPORT INFORMATION
  Report Type: Spontaneous
  Country: US (occurrence: US)
  Receive Date: 20130909
  Receipt Date: 20130909
  Transmission Date: 20140515
  Serious: No
  Sender: FDA-Public Use
  Company Number: US-BRISTOL-MYERS SQUIBB COMPANY-18876482

PATIENT
  Age: 64 Year
  Sex: Female

DRUGS (1)
  1. ABILIFY [Suspect]
     Indication: MAJOR DEPRESSION
     Dosage: DOSE INCREASED TO 7.5 MG TO 15 MG AND THEN STOPPED
     Dates: start: 2011

REACTIONS (2)
  - Chills [Recovering/Resolving]
  - Muscle tightness [Recovering/Resolving]
